FAERS Safety Report 7503598-X (Version None)
Quarter: 2011Q1

REPORT INFORMATION
  Report Type: 
  Country: None (occurrence: None)
  Receive Date: 20110322
  Receipt Date: 20110120
  Transmission Date: 20110831
  Serious: Yes (Hospitalization)
  Sender: FDA-Public Use
  Company Number: UTC-004642

PATIENT
  Age: 67 Year
  Sex: Male
  Weight: 108.9 kg

DRUGS (2)
  1. TYVASO [Suspect]
     Indication: PULMONARY ARTERIAL HYPERTENSION
     Dosage: (54 MCG), INHALATION
     Route: 055
     Dates: start: 20101109
  2. METOPROLOL TARTRATE [Suspect]

REACTIONS (2)
  - PRODUCTIVE COUGH [None]
  - DIZZINESS [None]
